FAERS Safety Report 12118984 (Version 1)
Quarter: 2016Q1

REPORT INFORMATION
  Report Type: Spontaneous
  Country: US (occurrence: None)
  Receive Date: 20160225
  Receipt Date: 20160225
  Transmission Date: 20160526
  Serious: No
  Sender: FDA-Public Use
  Company Number: None

PATIENT
  Age: 22 Year
  Sex: Female
  Weight: 58.97 kg

DRUGS (2)
  1. MUCINEX D [Concomitant]
     Active Substance: GUAIFENESIN\PSEUDOEPHEDRINE HYDROCHLORIDE
  2. NASONEX [Suspect]
     Active Substance: MOMETASONE FUROATE
     Indication: NASOPHARYNGITIS
     Dosage: 2 SPRAYS TWICE DAILY INTO THE NOSE
     Dates: start: 20160219, end: 20160220

REACTIONS (3)
  - Emotional disorder [None]
  - Epistaxis [None]
  - Drug ineffective [None]

NARRATIVE: CASE EVENT DATE: 20160220
